FAERS Safety Report 4666218-8 (Version None)
Quarter: 2005Q2

REPORT INFORMATION
  Report Type: 
  Country: None (occurrence: None)
  Receive Date: 20050518
  Receipt Date: 20050506
  Transmission Date: 20051028
  Serious: Yes (Other)
  Sender: FDA-Public Use
  Company Number: 2005072801

PATIENT
  Age: 51 Year
  Sex: Female

DRUGS (1)
  1. BEXTRA [Suspect]
     Indication: BACK PAIN
     Dates: start: 20050301, end: 20050101

REACTIONS (5)
  - ABDOMINAL PAIN UPPER [None]
  - DYSPEPSIA [None]
  - GASTRIC DISORDER [None]
  - INTESTINAL POLYP [None]
  - MALAISE [None]
